FAERS Safety Report 5201683-9 (Version None)
Quarter: 2007Q1

REPORT INFORMATION
  Report Type: 
  Country: None (occurrence: None)
  Receive Date: 20070108
  Receipt Date: 20061228
  Transmission Date: 20070707
  Serious: Yes (Other)
  Sender: FDA-Public Use
  Company Number: HQWYE108402JAN07

PATIENT
  Sex: Female

DRUGS (7)
  1. ENBREL [Suspect]
     Indication: RHEUMATOID ARTHRITIS
     Route: 058
     Dates: start: 20060704, end: 20061201
  2. RIMATIL [Concomitant]
  3. TEPRENONE [Concomitant]
  4. MOBIC [Concomitant]
  5. BONALON [Concomitant]
  6. METHOTREXATE [Concomitant]
  7. FOLIAMIN [Concomitant]

REACTIONS (2)
  - LEUKOPENIA [None]
  - SCLERITIS [None]
